FAERS Safety Report 10146144 (Version 1)
Quarter: 2014Q2

REPORT INFORMATION
  Report Type: Report from Study
  Country: CA (occurrence: CA)
  Receive Date: 20140501
  Receipt Date: 20140501
  Transmission Date: 20141212
  Serious: Yes (Other)
  Sender: FDA-Public Use
  Company Number: CA-JNJFOC-20140416517

PATIENT
  Age: 62 Year
  Sex: Female
  Weight: 64.5 kg

DRUGS (1)
  1. REMICADE [Suspect]
     Indication: ANKYLOSING SPONDYLITIS
     Route: 042
     Dates: start: 20131128

REACTIONS (5)
  - Migraine with aura [Unknown]
  - Weight decreased [Unknown]
  - Blindness transient [Unknown]
  - Decreased appetite [Unknown]
  - Nausea [Unknown]
